FAERS Safety Report 18999634 (Version 1)
Quarter: 2021Q1

REPORT INFORMATION
  Report Type: Report from Study
  Country: CA (occurrence: CA)
  Receive Date: 20210311
  Receipt Date: 20210311
  Transmission Date: 20210420
  Serious: Yes (Other)
  Sender: FDA-Public Use
  Company Number: NVSC2021CA049629

PATIENT
  Sex: Male

DRUGS (3)
  1. KINERET [Concomitant]
     Active Substance: ANAKINRA
     Indication: PRODUCT USED FOR UNKNOWN INDICATION
     Dosage: UNK
     Route: 065
  2. COLCHICINE. [Concomitant]
     Active Substance: COLCHICINE
     Indication: PRODUCT USED FOR UNKNOWN INDICATION
     Dosage: UNK (FOR 14 DAY)
     Route: 065
  3. ILARIS [Suspect]
     Active Substance: CANAKINUMAB
     Indication: STILL^S DISEASE
     Dosage: 300 MG, QMO
     Route: 058
     Dates: start: 20190628

REACTIONS (9)
  - Rash [Unknown]
  - Condition aggravated [Unknown]
  - Pleurisy [Unknown]
  - Myalgia [Unknown]
  - Pyrexia [Unknown]
  - Arthralgia [Unknown]
  - Still^s disease [Unknown]
  - Pericarditis [Unknown]
  - Influenza [Unknown]
